FAERS Safety Report 10788184 (Version 1)
Quarter: 2015Q1

REPORT INFORMATION
  Report Type: Spontaneous
  Country: US (occurrence: None)
  Receive Date: 20150210
  Receipt Date: 20150210
  Transmission Date: 20150721
  Serious: Yes (Other)
  Sender: FDA-Public Use
  Company Number: FK201500601

PATIENT
  Age: 55 Year
  Sex: Female

DRUGS (3)
  1. PROGESTERONE INJECTION [Suspect]
     Active Substance: PROGESTERONE
     Indication: PRODUCT USED FOR UNKNOWN INDICATION
     Route: 048
  2. ESTROGEN [Concomitant]
     Active Substance: ESTRONE\SUS SCROFA OVARY
  3. PRASTERONE (PRASTERONE) [Concomitant]

REACTIONS (3)
  - Endometrial adenocarcinoma [None]
  - Dyspareunia [None]
  - Atrophic vulvovaginitis [None]
